FAERS Safety Report 22343799 (Version 1)
Quarter: 2023Q2

REPORT INFORMATION
  Report Type: Spontaneous
  Country: CH (occurrence: CH)
  Receive Date: 20230519
  Receipt Date: 20230519
  Transmission Date: 20230721
  Serious: Yes (Life-Threatening, Hospitalization, Other)
  Sender: FDA-Public Use
  Company Number: CH-AJANTA-2023AJA00090

PATIENT
  Age: 17 Year
  Sex: Female

DRUGS (5)
  1. VENLAFAXINE [Suspect]
     Active Substance: VENLAFAXINE HYDROCHLORIDE
     Indication: Depression
     Route: 048
  2. VENLAFAXINE [Suspect]
     Active Substance: VENLAFAXINE HYDROCHLORIDE
     Indication: Suicidal ideation
  3. ZOLMITRIPTAN [Suspect]
     Active Substance: ZOLMITRIPTAN
     Indication: Product used for unknown indication
     Route: 048
  4. OXYCODONE [Suspect]
     Active Substance: OXYCODONE
     Indication: Product used for unknown indication
     Route: 065
  5. CAFFEINE\MECLIZINE MONOHYDROCHLORIDE\PYRIDOXINE HYDROCHLORIDE [Suspect]
     Active Substance: CAFFEINE\MECLIZINE MONOHYDROCHLORIDE\PYRIDOXINE HYDROCHLORIDE
     Indication: Product used for unknown indication
     Route: 048

REACTIONS (14)
  - Circulatory collapse [Recovered/Resolved]
  - Acute hepatic failure [Recovered/Resolved]
  - Metabolic acidosis [Recovering/Resolving]
  - Disseminated intravascular coagulation [Recovering/Resolving]
  - Lactic acidosis [Recovering/Resolving]
  - Status epilepticus [Recovering/Resolving]
  - Toxicity to various agents [Recovering/Resolving]
  - Electrocardiogram QT prolonged [Recovered/Resolved]
  - Suicidal ideation [Not Recovered/Not Resolved]
  - Stress cardiomyopathy [Recovering/Resolving]
  - Gastric haemorrhage [Recovering/Resolving]
  - Serotonin syndrome [Recovered/Resolved]
  - Acute kidney injury [Recovering/Resolving]
  - Somnolence [Recovered/Resolved]
